FAERS Safety Report 7431854-2 (Version None)
Quarter: 2011Q2

REPORT INFORMATION
  Report Type: 
  Country: None (occurrence: None)
  Receive Date: 20110420
  Receipt Date: 20110420
  Transmission Date: 20111010
  Serious: Yes (Hospitalization)
  Sender: FDA-Public Use
  Company Number: None

PATIENT
  Age: 74 Year
  Sex: Female
  Weight: 73.9363 kg

DRUGS (1)
  1. RECLAST [Suspect]
     Indication: OSTEOPOROSIS
     Dosage: 5MG 1 IV
     Route: 042
     Dates: start: 20110408

REACTIONS (5)
  - PYREXIA [None]
  - HYPOKALAEMIA [None]
  - ELECTROCARDIOGRAM ABNORMAL [None]
  - HYPOALBUMINAEMIA [None]
  - HYPOTENSION [None]
